FAERS Safety Report 25654132 (Version 1)
Quarter: 2025Q3

REPORT INFORMATION
  Report Type: Spontaneous
  Country: TR (occurrence: TR)
  Receive Date: 20250807
  Receipt Date: 20250807
  Transmission Date: 20251020
  Serious: Yes (Other)
  Sender: ASCENT PHARMACEUTICALS INC
  Company Number: TR-ASCENT-2025ASLIT00155

PATIENT
  Age: 5 Year

DRUGS (4)
  1. IBUPROFEN [Suspect]
     Active Substance: IBUPROFEN
     Indication: Drug provocation test
     Route: 065
  2. IBUPROFEN [Suspect]
     Active Substance: IBUPROFEN
     Indication: Product used for unknown indication
  3. METAMIZOLE [Suspect]
     Active Substance: METAMIZOLE
     Indication: Drug provocation test
     Route: 065
  4. METAMIZOLE [Suspect]
     Active Substance: METAMIZOLE
     Indication: Product used for unknown indication

REACTIONS (4)
  - Angioedema [Unknown]
  - Hypersensitivity [Unknown]
  - Urticaria [Unknown]
  - Cross sensitivity reaction [Unknown]
